FAERS Safety Report 17136557 (Version 3)
Quarter: 2020Q2

REPORT INFORMATION
  Report Type: Report from Study
  Country: GB (occurrence: GB)
  Receive Date: 20191210
  Receipt Date: 20200623
  Transmission Date: 20200713
  Serious: Yes (Other)
  Sender: FDA-Public Use
  Company Number: GB-JNJFOC-20191203179

PATIENT
  Sex: Male

DRUGS (8)
  1. STELARA [Suspect]
     Active Substance: USTEKINUMAB
     Indication: PSORIASIS
     Route: 058
  2. OMEPRAZOLE. [Concomitant]
     Active Substance: OMEPRAZOLE
  3. RAMIPRIL. [Concomitant]
     Active Substance: RAMIPRIL
  4. DERMOL                             /01330701/ [Concomitant]
     Dosage: DERMOL WASH
  5. SIMVASTATIN. [Concomitant]
     Active Substance: SIMVASTATIN
  6. NICORANDIL [Concomitant]
     Active Substance: NICORANDIL
  7. ASPRIN [Concomitant]
     Active Substance: ASPIRIN
  8. STELARA [Suspect]
     Active Substance: USTEKINUMAB

REACTIONS (4)
  - Dry mouth [Unknown]
  - Feeling cold [Unknown]
  - Skin ulcer [Recovering/Resolving]
  - Psoriasis [Recovering/Resolving]
